FAERS Safety Report 16750988 (Version 2)
Quarter: 2020Q1

REPORT INFORMATION
  Report Type: Report from Study
  Country: US (occurrence: US)
  Receive Date: 20190828
  Receipt Date: 20200213
  Transmission Date: 20200409
  Serious: No
  Sender: FDA-Public Use
  Company Number: US-AMGEN-USASP2019133908

PATIENT
  Age: 65 Year
  Sex: Male

DRUGS (1)
  1. REPATHA [Suspect]
     Active Substance: EVOLOCUMAB
     Indication: HYPERCHOLESTEROLAEMIA
     Dosage: 140 MILLIGRAM, Q2WK
     Route: 065
     Dates: start: 2019

REACTIONS (8)
  - Arthropathy [Unknown]
  - Eye infection [Recovered/Resolved]
  - Back pain [Unknown]
  - Therapy non-responder [Unknown]
  - Ocular hyperaemia [Unknown]
  - Rhinorrhoea [Unknown]
  - Swelling of eyelid [Unknown]
  - Fatigue [Unknown]

NARRATIVE: CASE EVENT DATE: 2019
